FAERS Safety Report 19705655 (Version 1)
Quarter: 2021Q3

REPORT INFORMATION
  Report Type: Spontaneous
  Country: CN (occurrence: CN)
  Receive Date: 20210817
  Receipt Date: 20210817
  Transmission Date: 20211014
  Serious: Yes (Other)
  Sender: FDA-Public Use
  Company Number: CN-ROCHE-2889053

PATIENT
  Age: 42 Year
  Sex: Male

DRUGS (4)
  1. HERCEPTIN [Suspect]
     Active Substance: TRASTUZUMAB
     Indication: ADENOCARCINOMA GASTRIC
     Route: 041
     Dates: start: 20210714
  2. HERCEPTIN [Suspect]
     Active Substance: TRASTUZUMAB
     Route: 041
     Dates: start: 20210802, end: 20210802
  3. CAMRELIZUMAB [Suspect]
     Active Substance: CAMRELIZUMAB
     Indication: ADENOCARCINOMA GASTRIC
     Route: 041
     Dates: start: 20210716
  4. CAMRELIZUMAB [Suspect]
     Active Substance: CAMRELIZUMAB
     Route: 041
     Dates: start: 20210730, end: 20210730

REACTIONS (1)
  - Myelosuppression [Recovered/Resolved]

NARRATIVE: CASE EVENT DATE: 20210719
